FAERS Safety Report 4303903-1 (Version None)
Quarter: 2004Q1

REPORT INFORMATION
  Report Type: 
  Country: None (occurrence: None)
  Receive Date: 20040223
  Receipt Date: 20040210
  Transmission Date: 20041129
  Serious: Yes (Death)
  Sender: FDA-Public Use
  Company Number: HQWYE961212FEB04

PATIENT
  Sex: Female

DRUGS (1)
  1. CORDARONE [Suspect]

REACTIONS (2)
  - LUNG INJURY [None]
  - MEDICATION ERROR [None]
